FAERS Safety Report 8352246-8 (Version None)
Quarter: 2012Q2

REPORT INFORMATION
  Report Type: 
  Country: None (occurrence: None)
  Receive Date: 20120511
  Receipt Date: 20120430
  Transmission Date: 20120825
  Serious: Yes (Other)
  Sender: FDA-Public Use
  Company Number: US-JNJFOC-20120501196

PATIENT
  Sex: Male

DRUGS (1)
  1. STELARA [Suspect]
     Indication: PSORIASIS
     Dosage: STARTED IN APR OR MAY-2011
     Route: 058
     Dates: start: 20110101

REACTIONS (3)
  - DRUG DOSE OMISSION [None]
  - BASAL CELL CARCINOMA [None]
  - DEVICE FAILURE [None]
